FAERS Safety Report 4806314-5 (Version None)
Quarter: 2005Q4

REPORT INFORMATION
  Report Type: 
  Country: None (occurrence: None)
  Receive Date: 20051021
  Receipt Date: 20050706
  Transmission Date: 20060501
  Serious: Yes (Other)
  Sender: FDA-Public Use
  Company Number: US-MERCK-0507USA00991

PATIENT
  Age: 65 Year
  Sex: Female
  Weight: 68 kg

DRUGS (5)
  1. VIOXX [Suspect]
     Indication: ARTHRITIS
     Route: 048
     Dates: start: 20020719
  2. VIOXX [Suspect]
     Route: 048
     Dates: start: 20020701, end: 20041001
  3. VIOXX [Suspect]
     Indication: ARTHRALGIA
     Route: 048
     Dates: start: 20020719
  4. VIOXX [Suspect]
     Route: 048
     Dates: start: 20020701, end: 20041001
  5. MONOPRIL [Concomitant]
     Indication: HYPERTENSION
     Route: 065

REACTIONS (2)
  - MYOCARDIAL INFARCTION [None]
  - SLEEP APNOEA SYNDROME [None]
